FAERS Safety Report 6266358-6 (Version None)
Quarter: 2009Q3

REPORT INFORMATION
  Report Type: 
  Country: None (occurrence: None)
  Receive Date: 20090713
  Receipt Date: 20090702
  Transmission Date: 20100115
  Serious: Yes (Other)
  Sender: FDA-Public Use
  Company Number: GB-PURDUE-USA-2009-0039027

PATIENT
  Age: 43 Year
  Weight: 80 kg

DRUGS (6)
  1. TRAMADOL HCL [Suspect]
     Indication: BREAKTHROUGH PAIN
     Dosage: 100 MG, DAILY
     Route: 048
     Dates: start: 20090216
  2. TRAMADOL HCL [Suspect]
     Indication: POSTOPERATIVE ANALGESIA
  3. ACETAMINOPHEN W/ CODEINE [Concomitant]
     Indication: ARTHRALGIA
     Dosage: UNK
     Dates: start: 20080101
  4. DICLOFENAC [Concomitant]
     Indication: ARTHRALGIA
     Dosage: 50 MG, UNK
     Dates: start: 20080101
  5. VALPROATE SODIUM [Concomitant]
     Indication: GRAND MAL CONVULSION
     Dosage: 800 MG, UNK
     Dates: start: 19991001
  6. THIOPENTONE                        /00053401/ [Concomitant]
     Indication: GENERAL ANAESTHESIA
     Dosage: UNK
     Dates: start: 20090201, end: 20090201

REACTIONS (1)
  - GRAND MAL CONVULSION [None]
